FAERS Safety Report 23273565 (Version 1)
Quarter: 2023Q4

REPORT INFORMATION
  Report Type: Spontaneous
  Country: US (occurrence: US)
  Receive Date: 20231207
  Receipt Date: 20231207
  Transmission Date: 20240109
  Serious: No
  Sender: FDA-Public Use
  Company Number: US-PFIZER INC-202300413304

PATIENT
  Age: 71 Year
  Sex: Male

DRUGS (7)
  1. PAXLOVID [Suspect]
     Active Substance: NIRMATRELVIR\RITONAVIR
     Indication: COVID-19 treatment
     Dosage: UNK
     Dates: start: 20231116, end: 20231121
  2. PENICILLIN V POTASSIUM [Concomitant]
     Active Substance: PENICILLIN V POTASSIUM
     Dosage: UNK
     Dates: start: 20231102, end: 20231127
  3. LORATADINE [Concomitant]
     Active Substance: LORATADINE
     Dosage: UNK
     Dates: start: 202311, end: 202311
  4. MATURE MULTIVITAMINS [Concomitant]
     Dosage: UNK
     Dates: start: 20231102, end: 20231127
  5. ASPIRIN [Concomitant]
     Active Substance: ASPIRIN
     Dosage: UNK
     Dates: start: 20231102, end: 20231127
  6. VITAMIN D3 [Concomitant]
     Active Substance: CHOLECALCIFEROL
     Dosage: UNK
     Dates: start: 20231102, end: 20231127
  7. FLAXSEED OIL NATURE MADE [Concomitant]
     Dosage: UNK
     Dates: start: 20231102, end: 20231127

REACTIONS (2)
  - COVID-19 [Unknown]
  - Disease recurrence [Unknown]

NARRATIVE: CASE EVENT DATE: 20231125
